FAERS Safety Report 9255735 (Version 1)
Quarter: 2013Q2

REPORT INFORMATION
  Report Type: Spontaneous
  Country: US (occurrence: US)
  Receive Date: 20130425
  Receipt Date: 20130425
  Transmission Date: 20140414
  Serious: Yes (Death, Hospitalization)
  Sender: FDA-Public Use
  Company Number: US-TEVA-399673USA

PATIENT
  Sex: Male
  Weight: 54.48 kg

DRUGS (12)
  1. PROAIR HFA [Suspect]
     Indication: CHRONIC OBSTRUCTIVE PULMONARY DISEASE
  2. ADVAIR [Concomitant]
     Dosage: 100/50
  3. BUDESONIDE [Concomitant]
     Dosage: 1 MILLIGRAM DAILY;
  4. IPRATROPIUM BROMIDE [Concomitant]
  5. ALBUTEROL SULFATE [Concomitant]
     Route: 048
  6. CARVEDILOL [Concomitant]
     Dosage: 6.25 MILLIGRAM DAILY;
  7. SIMVASTATIN [Concomitant]
     Dosage: 40 MILLIGRAM DAILY;
  8. TERAZOSIN [Concomitant]
     Dosage: 5 MILLIGRAM DAILY;
  9. FUROSEMIDE [Concomitant]
     Dosage: 80 MILLIGRAM DAILY;
  10. POTASSIUM [Concomitant]
     Dosage: 20 MILLIEQUIVALENTS DAILY;
  11. DEXILANT [Concomitant]
     Indication: GASTRIC DISORDER
  12. ASPIRIN [Concomitant]
     Dosage: 81 MILLIGRAM DAILY;

REACTIONS (1)
  - Chronic obstructive pulmonary disease [Fatal]
